FAERS Safety Report 6599616-6 (Version None)
Quarter: 2010Q1

REPORT INFORMATION
  Report Type: 
  Country: None (occurrence: None)
  Receive Date: 20100224
  Receipt Date: 20100218
  Transmission Date: 20100710
  Serious: Yes (Death, Hospitalization)
  Sender: FDA-Public Use
  Company Number: US-JNJFOC-20091105956

PATIENT
  Sex: Male

DRUGS (7)
  1. PREZISTA [Suspect]
     Indication: HIV INFECTION
     Route: 048
  2. PREZISTA [Suspect]
     Route: 048
  3. RITONAVIR [Suspect]
     Indication: HIV INFECTION
     Route: 065
  4. RITONAVIR [Suspect]
     Route: 065
  5. TRUVADA [Suspect]
     Indication: HIV INFECTION
     Route: 065
  6. BACTRIM DS [Concomitant]
     Indication: ANTIFUNGAL PROPHYLAXIS
  7. HYDROCHLOROTHIAZIDE [Concomitant]
     Indication: HYPERTENSION

REACTIONS (1)
  - HEPATITIS FULMINANT [None]
